FAERS Safety Report 17722255 (Version 1)
Quarter: 2020Q2

REPORT INFORMATION
  Report Type: Spontaneous
  Country: US (occurrence: US)
  Receive Date: 20200429
  Receipt Date: 20200429
  Transmission Date: 20200714
  Serious: No
  Sender: FDA-Public Use
  Company Number: US-MYLANLABS-2020M1040861

PATIENT
  Sex: Male
  Weight: 103 kg

DRUGS (4)
  1. DOXYCYCLINE HCL [Concomitant]
     Active Substance: DOXYCYCLINE HYDROCHLORIDE
     Dosage: UNK
  2. WIXELA INHUB [Suspect]
     Active Substance: FLUTICASONE PROPIONATE\SALMETEROL XINAFOATE
     Indication: ASTHMA
     Dosage: TWICE DAILY
     Route: 055
  3. CLINDAMYCIN. [Concomitant]
     Active Substance: CLINDAMYCIN
     Dosage: UNK
  4. TRIAMCINOLONE ACETONIDE. [Concomitant]
     Active Substance: TRIAMCINOLONE ACETONIDE
     Dosage: UNK

REACTIONS (3)
  - Eosinophil count increased [Not Recovered/Not Resolved]
  - Tinea cruris [Recovering/Resolving]
  - Folliculitis [Recovering/Resolving]
